FAERS Safety Report 8257755-8 (Version None)
Quarter: 2012Q2

REPORT INFORMATION
  Report Type: 
  Country: None (occurrence: None)
  Receive Date: 20120404
  Receipt Date: 20120327
  Transmission Date: 20120825
  Serious: Yes (Hospitalization)
  Sender: FDA-Public Use
  Company Number: US-BIOGENIDEC-2011BI017374

PATIENT
  Age: 58 Year
  Sex: Female

DRUGS (3)
  1. TYSABRI [Suspect]
     Indication: MULTIPLE SCLEROSIS
     Route: 042
     Dates: start: 20070830, end: 20101025
  2. AVONEX [Concomitant]
     Indication: MULTIPLE SCLEROSIS
     Route: 030
     Dates: start: 19961201
  3. AVONEX [Concomitant]
     Route: 030

REACTIONS (7)
  - OVARIAN CANCER [None]
  - INFLUENZA LIKE ILLNESS [None]
  - TREMOR [None]
  - PAIN IN EXTREMITY [None]
  - ABDOMINAL MASS [None]
  - LOSS OF CONSCIOUSNESS [None]
  - GENERAL PHYSICAL HEALTH DETERIORATION [None]
